FAERS Safety Report 6078658-3 (Version None)
Quarter: 2009Q1

REPORT INFORMATION
  Report Type: 
  Country: None (occurrence: None)
  Receive Date: 20090216
  Receipt Date: 20090206
  Transmission Date: 20090719
  Serious: Yes (Hospitalization)
  Sender: FDA-Public Use
  Company Number: PHEH2009US01490

PATIENT
  Sex: Male

DRUGS (7)
  1. RITALIN [Suspect]
     Indication: ATTENTION DEFICIT/HYPERACTIVITY DISORDER
  2. LEXAPRO [Interacting]
     Dosage: 10 MG, QD
     Route: 048
     Dates: start: 20080601, end: 20080901
  3. LEXAPRO [Interacting]
     Dosage: 20 MG, QD
     Route: 048
     Dates: start: 20080901, end: 20081010
  4. INDERAL [Concomitant]
  5. LOTENSIN [Concomitant]
  6. CLONAZEPAM [Concomitant]
  7. ALLEGRA D 24 HOUR [Concomitant]

REACTIONS (2)
  - DRUG INTERACTION [None]
  - HYPERTENSION [None]
